FAERS Safety Report 7386395-8 (Version None)
Quarter: 2011Q1

REPORT INFORMATION
  Report Type: 
  Country: None (occurrence: None)
  Receive Date: 20110323
  Receipt Date: 20110308
  Transmission Date: 20110831
  Serious: Yes (Hospitalization, Other)
  Sender: FDA-Public Use
  Company Number: 20100417

PATIENT
  Age: 65 Year
  Sex: Female

DRUGS (13)
  1. METHYLENE BLUE INJECTION, USP (0310-10) (METHYLENE BLUE) 10 MG/ML [Suspect]
     Indication: PARATHYROIDECTOMY
     Dosage: 200 MG (1.75 MG/KG) INTRAVENOUS DRIP
     Route: 041
  2. SIMVASTATIN [Concomitant]
  3. ATENOLOL [Concomitant]
  4. METFORMIN [Concomitant]
  5. MIDAZOLAM [Concomitant]
  6. PAROXETINE [Concomitant]
  7. PROPOFOL [Concomitant]
  8. RAMIPRIL [Concomitant]
  9. INSULIN [Concomitant]
  10. CARBIMAZOLE [Concomitant]
  11. FENTANYL [Concomitant]
  12. ROCURONIUM BROMIDE [Concomitant]
  13. ASPIRIN [Concomitant]

REACTIONS (9)
  - APHASIA [None]
  - SOMNOLENCE [None]
  - AGITATION [None]
  - PO2 DECREASED [None]
  - BLOOD PRESSURE SYSTOLIC INCREASED [None]
  - UNRESPONSIVE TO STIMULI [None]
  - CONFUSIONAL STATE [None]
  - RESTLESSNESS [None]
  - BLOOD GLUCOSE INCREASED [None]
